FAERS Safety Report 6399974-1 (Version None)
Quarter: 2009Q4

REPORT INFORMATION
  Report Type: 
  Country: None (occurrence: None)
  Receive Date: 20091008
  Receipt Date: 20091008
  Transmission Date: 20100525
  Serious: Yes (Hospitalization)
  Sender: FDA-Public Use
  Company Number: None

PATIENT
  Sex: Male

DRUGS (2)
  1. SULFAMETHOXAZOLE AND TRIMETHOPRIM [Suspect]
     Indication: SKIN LESION
     Dates: start: 20081007, end: 20081013
  2. DOXYCYCLINE [Suspect]

REACTIONS (4)
  - CHILLS [None]
  - PYREXIA [None]
  - RASH PRURITIC [None]
  - TREMOR [None]
